FAERS Safety Report 22098422 (Version 1)
Quarter: 2023Q1

REPORT INFORMATION
  Report Type: Spontaneous
  Country: US (occurrence: None)
  Receive Date: 20230314
  Receipt Date: 20230314
  Transmission Date: 20230417
  Serious: Yes (Life-Threatening, Hospitalization)
  Sender: FDA-Public Use
  Company Number: None

PATIENT
  Age: 61 Year
  Sex: Male
  Weight: 107.55 kg

DRUGS (12)
  1. LUMASON [Suspect]
     Active Substance: SULFUR HEXAFLUORIDE
     Route: 040
  2. ENTRESTO [Concomitant]
     Active Substance: SACUBITRIL\VALSARTAN
  3. COREG [Concomitant]
     Active Substance: CARVEDILOL
  4. LANOXIN [Concomitant]
     Active Substance: DIGOXIN
  5. CHANTIX [Concomitant]
     Active Substance: VARENICLINE TARTRATE
  6. novoLOG flexpen U-100 insulin [Concomitant]
  7. LASIX [Concomitant]
     Active Substance: FUROSEMIDE
  8. CRESTOR [Concomitant]
     Active Substance: ROSUVASTATIN CALCIUM
  9. ECOTRIN [Concomitant]
     Active Substance: ASPIRIN
  10. EMPAGLIFLOZIN [Concomitant]
     Active Substance: EMPAGLIFLOZIN
  11. ZOLOFT [Concomitant]
     Active Substance: SERTRALINE HYDROCHLORIDE
  12. LANTUS SOLOSTAR [Concomitant]
     Active Substance: INSULIN GLARGINE

REACTIONS (13)
  - Facial pain [None]
  - Malaise [None]
  - Restlessness [None]
  - Contrast media reaction [None]
  - Dyspnoea [None]
  - Cardio-respiratory arrest [None]
  - Hyperhidrosis [None]
  - Erythema [None]
  - Dyspnoea [None]
  - Anaphylactic reaction [None]
  - Oxygen saturation decreased [None]
  - Pulseless electrical activity [None]
  - Ventricular fibrillation [None]

NARRATIVE: CASE EVENT DATE: 20230313
